FAERS Safety Report 17257351 (Version 4)
Quarter: 2020Q1

REPORT INFORMATION
  Report Type: Spontaneous
  Country: US (occurrence: US)
  Receive Date: 20200110
  Receipt Date: 20200302
  Transmission Date: 20200409
  Serious: No
  Sender: FDA-Public Use
  Company Number: US-PFIZER INC-2020011045

PATIENT
  Age: 72 Year
  Sex: Female
  Weight: 120.2 kg

DRUGS (2)
  1. LYRICA [Suspect]
     Active Substance: PREGABALIN
     Indication: NEURALGIA
  2. LYRICA [Suspect]
     Active Substance: PREGABALIN
     Indication: NEUROPATHY PERIPHERAL
     Dosage: 150 MG, 3X/DAY, TAKE ONE CAPSULE BY MOUTH THREE TIMES A DAY 90 DAYS/150MG CAPSULE THREE TIMES A DAY
     Route: 048

REACTIONS (2)
  - Dry mouth [Unknown]
  - Nasopharyngitis [Unknown]
